FAERS Safety Report 10449307 (Version 2)
Quarter: 2014Q4

REPORT INFORMATION
  Report Type: Spontaneous
  Country: US (occurrence: US)
  Receive Date: 20140912
  Receipt Date: 20141001
  Transmission Date: 20150528
  Serious: Yes (Other)
  Sender: FDA-Public Use
  Company Number: PHEH2014US017567

PATIENT
  Age: 18 Year
  Sex: Female
  Weight: 62.5 kg

DRUGS (1)
  1. COARTEM [Suspect]
     Active Substance: ARTEMETHER\LUMEFANTRINE
     Indication: MALARIA
     Dosage: 1 DF (20 MG ARTE/ 120 MG LUME), UNK
     Route: 048
     Dates: start: 20140810, end: 20140812

REACTIONS (4)
  - Haemolysis [Recovering/Resolving]
  - Plasmodium falciparum infection [Recovered/Resolved]
  - Anaemia [Recovering/Resolving]
  - Haemoglobin abnormal [Recovering/Resolving]

NARRATIVE: CASE EVENT DATE: 201408
